FAERS Safety Report 8793453 (Version 2)
Quarter: 2012Q4

REPORT INFORMATION
  Report Type: 
  Country: JP (occurrence: JP)
  Receive Date: 20120918
  Receipt Date: 20121102
  Transmission Date: 20130627
  Serious: Yes (Life-Threatening)
  Sender: FDA-Public Use
  Company Number: PHHY2012JP080960

PATIENT
  Age: 59 Year
  Sex: Male

DRUGS (2)
  1. EXELON PATCH [Suspect]
     Indication: DEMENTIA ALZHEIMER^S TYPE
     Route: 062
  2. EXELON PATCH [Suspect]
     Dosage: 9 mg, daily
     Route: 062

REACTIONS (3)
  - Neoplasm malignant [Unknown]
  - Cough [Unknown]
  - Abdominal discomfort [Unknown]
